FAERS Safety Report 13568117 (Version 1)
Quarter: 2017Q2

REPORT INFORMATION
  Report Type: Report from Study
  Country: KR (occurrence: KR)
  Receive Date: 20170522
  Receipt Date: 20170522
  Transmission Date: 20170830
  Serious: Yes (Hospitalization, Other)
  Sender: FDA-Public Use
  Company Number: KR-CELLTRION INC.-2017KR005981

PATIENT

DRUGS (7)
  1. LACIDOFIL [Concomitant]
     Active Substance: LACTOBACILLUS ACIDOPHILUS\LACTOBACILLUS RHAMNOSUS
     Indication: FUNCTIONAL GASTROINTESTINAL DISORDER
     Dosage: 20 MG, BID
     Route: 048
     Dates: start: 20160713
  2. REMSIMA [Suspect]
     Active Substance: INFLIXIMAB
     Indication: COLITIS ULCERATIVE
     Dosage: 300 MG, SINGLE
     Route: 042
     Dates: start: 20160713, end: 20160713
  3. ASACOL [Concomitant]
     Active Substance: MESALAMINE
     Indication: COLITIS ULCERATIVE
     Dosage: 2000 MG, BID
     Route: 048
     Dates: start: 20160328, end: 20171004
  4. SYNTHROID [Concomitant]
     Active Substance: LEVOTHYROXINE SODIUM
     Indication: HYPOTHYROIDISM
     Dosage: .075 MG, DAILY
     Route: 048
     Dates: start: 20150815
  5. WONDERCAL D [Concomitant]
     Indication: OSTEOPENIA
     Dosage: 850 MG, DAILY
     Route: 048
     Dates: start: 20141016
  6. PENTASA [Concomitant]
     Active Substance: MESALAMINE
     Indication: COLITIS ULCERATIVE
     Dosage: 2000 MG, DAILY
     Route: 048
     Dates: start: 20170308, end: 20170411
  7. PURINETHOL [Concomitant]
     Active Substance: MERCAPTOPURINE
     Indication: COLITIS ULCERATIVE
     Dosage: 25 MG, DAILY
     Route: 048
     Dates: start: 20150930

REACTIONS (1)
  - Arthritis [Recovered/Resolved]

NARRATIVE: CASE EVENT DATE: 20170426
